FAERS Safety Report 25532684 (Version 6)
Quarter: 2025Q3

REPORT INFORMATION
  Report Type: Report from Study
  Country: EU (occurrence: EU)
  Receive Date: 20250709
  Receipt Date: 20250829
  Transmission Date: 20251021
  Serious: Yes (Death, Hospitalization, Other)
  Sender: TAKEDA
  Company Number: EU-TAKEDA-2025TUS060327

PATIENT
  Age: 52 Year
  Sex: Male

DRUGS (2)
  1. MARIBAVIR [Suspect]
     Active Substance: MARIBAVIR
     Indication: Cytomegalovirus infection
     Dosage: 400 MILLIGRAM, BID
     Dates: start: 20250617, end: 20250701
  2. MARIBAVIR [Suspect]
     Active Substance: MARIBAVIR

REACTIONS (6)
  - Multiple organ dysfunction syndrome [Fatal]
  - General physical health deterioration [Fatal]
  - Pancytopenia [Unknown]
  - Cellulitis [Unknown]
  - Viral load increased [Unknown]
  - Septic shock [Unknown]

NARRATIVE: CASE EVENT DATE: 20250630
